FAERS Safety Report 21517405 (Version 1)
Quarter: 2022Q4

REPORT INFORMATION
  Report Type: Other
  Country: None (occurrence: CN)
  Receive Date: 20221028
  Receipt Date: 20221028
  Transmission Date: 20230113
  Serious: Yes (Other)
  Sender: FDA-Public Use
  Company Number: CN-MLV Pharma LLC-2134252

PATIENT
  Age: 63 Year
  Sex: Male

DRUGS (3)
  1. NYSTATIN [Suspect]
     Active Substance: NYSTATIN
     Indication: Candida infection
     Route: 065
  2. SODIUM BICARBONATE [Suspect]
     Active Substance: SODIUM BICARBONATE
     Route: 048
  3. MICONAZOLE [Suspect]
     Active Substance: MICONAZOLE
     Route: 061

REACTIONS (6)
  - Drug ineffective [Unknown]
  - Candida infection [Recovered/Resolved]
  - Dysplasia [Recovered/Resolved]
  - Focal nodular hyperplasia [Recovered/Resolved]
  - Atrophic glossitis [Recovered/Resolved]
  - Tongue disorder [Recovered/Resolved]
